FAERS Safety Report 14626015 (Version 1)
Quarter: 2018Q1

REPORT INFORMATION
  Report Type: Spontaneous
  Country: AR (occurrence: AR)
  Receive Date: 20180312
  Receipt Date: 20180312
  Transmission Date: 20180509
  Serious: Yes (Other)
  Sender: FDA-Public Use
  Company Number: AR-NOVAST LABORATORIES, LTD-AR-2018NOV000132

PATIENT
  Age: 49 Year
  Sex: Female

DRUGS (1)
  1. ACETAZOLAMIDE. [Suspect]
     Active Substance: ACETAZOLAMIDE
     Dosage: 500 MG (2 TABLETS 250 MG) UNK

REACTIONS (2)
  - Angle closure glaucoma [Recovering/Resolving]
  - Vomiting [Unknown]
